FAERS Safety Report 7277090-4 (Version None)
Quarter: 2011Q1

REPORT INFORMATION
  Report Type: 
  Country: None (occurrence: None)
  Receive Date: 20110207
  Receipt Date: 20110203
  Transmission Date: 20110831
  Serious: Yes (Hospitalization, Disabling, Other)
  Sender: FDA-Public Use
  Company Number: US-PFIZER INC-2010091816

PATIENT
  Sex: Female

DRUGS (3)
  1. CLONAZEPAM [Concomitant]
     Indication: ANXIETY
     Dosage: UNK
     Dates: start: 20080211, end: 20081024
  2. CHANTIX [Suspect]
     Indication: SMOKING CESSATION THERAPY
     Dosage: ONE MONTH WITH 3 REFILLS 0.5MG TAB THEN 1.0MG
     Dates: start: 20070817, end: 20080715
  3. CLONAZEPAM [Concomitant]
     Indication: DEPRESSION

REACTIONS (4)
  - SUICIDE ATTEMPT [None]
  - ANXIETY [None]
  - INTENTIONAL OVERDOSE [None]
  - DEPRESSION [None]
